FAERS Safety Report 8803029 (Version 1)
Quarter: 2012Q4

REPORT INFORMATION
  Report Type: 
  Country: US (occurrence: US)
  Receive Date: 20120924
  Receipt Date: 20120924
  Transmission Date: 20130627
  Serious: Yes (Hospitalization)
  Sender: FDA-Public Use
  Company Number: US-JNJFOC-20120906005

PATIENT
  Age: 38 None
  Sex: Male
  Weight: 70.31 kg

DRUGS (1)
  1. LEVAQUIN [Suspect]
     Indication: DIARRHOEA
     Dosage: 10 day course of treatment
     Route: 048

REACTIONS (11)
  - Arterial rupture [Unknown]
  - Restless legs syndrome [Not Recovered/Not Resolved]
  - Crohn^s disease [Not Recovered/Not Resolved]
  - Colitis ulcerative [Not Recovered/Not Resolved]
  - Irritable bowel syndrome [Not Recovered/Not Resolved]
  - Gastrointestinal disorder [Not Recovered/Not Resolved]
  - Abnormal loss of weight [Not Recovered/Not Resolved]
  - Mental disorder [Not Recovered/Not Resolved]
  - Post procedural complication [Not Recovered/Not Resolved]
  - Substance abuse [Not Recovered/Not Resolved]
  - Stress [Not Recovered/Not Resolved]
